FAERS Safety Report 13369612 (Version 1)
Quarter: 2017Q1

REPORT INFORMATION
  Report Type: Spontaneous
  Country: US (occurrence: US)
  Receive Date: 20170324
  Receipt Date: 20170324
  Transmission Date: 20170429
  Serious: No
  Sender: FDA-Public Use
  Company Number: US-ROCHE-1176720

PATIENT
  Sex: Female

DRUGS (5)
  1. TAGAMET [Concomitant]
     Active Substance: CIMETIDINE
  2. NAPROXEN. [Concomitant]
     Active Substance: NAPROXEN
  3. ZYRTEC [Concomitant]
     Active Substance: CETIRIZINE HYDROCHLORIDE
  4. XOLAIR [Suspect]
     Active Substance: OMALIZUMAB
     Indication: IDIOPATHIC ANGIOEDEMA
     Route: 065
  5. MELOXICAM. [Concomitant]
     Active Substance: MELOXICAM

REACTIONS (2)
  - Swelling [Unknown]
  - Pruritus [Unknown]
